FAERS Safety Report 26211343 (Version 1)
Quarter: 2025Q4

REPORT INFORMATION
  Report Type: Spontaneous
  Country: GB (occurrence: GB)
  Receive Date: 20251230
  Receipt Date: 20251230
  Transmission Date: 20260117
  Serious: Yes (Other)
  Sender: IPSEN BIOPHARMACEUTICALS, INC.
  Company Number: GB-ADVANZ PHARMA-202512011227

PATIENT
  Sex: Female

DRUGS (1)
  1. LANREOTIDE [Suspect]
     Active Substance: LANREOTIDE
     Indication: Neuroendocrine tumour
     Dosage: 120 MG E28D (DEEP SUBCUTANEOUS)
     Route: 058

REACTIONS (2)
  - Parathyroid disorder [Unknown]
  - Paraesthesia [Unknown]
